FAERS Safety Report 7349904-0 (Version None)
Quarter: 2011Q1

REPORT INFORMATION
  Report Type: 
  Country: None (occurrence: None)
  Receive Date: 20110314
  Receipt Date: 20110310
  Transmission Date: 20110831
  Serious: Yes (Other)
  Sender: FDA-Public Use
  Company Number: US-ROCHE-755802

PATIENT
  Age: 12 Year
  Sex: Female

DRUGS (1)
  1. TAMIFLU [Suspect]
     Indication: INFLUENZA
     Route: 048
     Dates: start: 20110111

REACTIONS (3)
  - HALLUCINATION, VISUAL [None]
  - HALLUCINATION, AUDITORY [None]
  - CONFUSIONAL STATE [None]
